FAERS Safety Report 12683633 (Version 2)
Quarter: 2016Q3

REPORT INFORMATION
  Report Type: Spontaneous
  Country: CA (occurrence: CA)
  Receive Date: 20160825
  Receipt Date: 20160831
  Transmission Date: 20161109
  Serious: Yes (Hospitalization)
  Sender: FDA-Public Use
  Company Number: CA-VALIDUS PHARMACEUTICALS LLC-CA-2016VAL002517

PATIENT
  Age: 38 Year
  Sex: Male

DRUGS (3)
  1. COLECALCIFEROL [Suspect]
     Active Substance: CHOLECALCIFEROL
     Indication: VITAMIN SUPPLEMENTATION
     Dosage: UNK
     Route: 030
  2. ERGOCALCIFEROL. [Suspect]
     Active Substance: ERGOCALCIFEROL
     Indication: VITAMIN SUPPLEMENTATION
     Dosage: 300000 IU, WEEKLY; INJECTION
     Route: 030
  3. ERGOCALCIFEROL. [Suspect]
     Active Substance: ERGOCALCIFEROL
     Dosage: 300000 IU, TWICE A WEEK; INJECTION
     Route: 030

REACTIONS (18)
  - Nephrocalcinosis [Recovering/Resolving]
  - Pruritus generalised [Recovering/Resolving]
  - Vitamin D increased [Recovering/Resolving]
  - Toxicity to various agents [Recovering/Resolving]
  - Deafness [Recovering/Resolving]
  - Asthenia [Recovering/Resolving]
  - Electrocardiogram QT shortened [Recovering/Resolving]
  - Arthralgia [Recovering/Resolving]
  - Tympanometry [Recovering/Resolving]
  - Bone pain [Recovering/Resolving]
  - Weight decreased [Recovering/Resolving]
  - Hypohidrosis [Recovering/Resolving]
  - Hypercalcaemia [Recovering/Resolving]
  - Nephrolithiasis [Recovering/Resolving]
  - Acute kidney injury [Recovering/Resolving]
  - Blood creatinine increased [Recovering/Resolving]
  - Blood urea increased [Recovering/Resolving]
  - Fatigue [Recovering/Resolving]

NARRATIVE: CASE EVENT DATE: 2013
